FAERS Safety Report 12778570 (Version 2)
Quarter: 2016Q3

REPORT INFORMATION
  Report Type: Spontaneous
  Country: SE (occurrence: SE)
  Receive Date: 20160926
  Receipt Date: 20160928
  Transmission Date: 20161109
  Serious: Yes (Disabling, Other)
  Sender: FDA-Public Use
  Company Number: SE-LEO PHARMA-244118

PATIENT
  Sex: Female

DRUGS (1)
  1. PICATO [Suspect]
     Active Substance: INGENOL MEBUTATE
     Indication: ACTINIC KERATOSIS
     Dates: start: 201605, end: 20160516

REACTIONS (5)
  - Accidental exposure to product [Unknown]
  - Blindness [Unknown]
  - Eye pain [Unknown]
  - Corneal infection [Unknown]
  - Lacrimation increased [Unknown]
